FAERS Safety Report 6198722-8 (Version None)
Quarter: 2009Q2

REPORT INFORMATION
  Report Type: 
  Country: None (occurrence: None)
  Receive Date: 20090519
  Receipt Date: 20090519
  Transmission Date: 20091009
  Serious: Yes (Disabling)
  Sender: FDA-Public Use
  Company Number: None

PATIENT
  Age: 56 Year
  Sex: Female
  Weight: 86.1834 kg

DRUGS (1)
  1. ABILIFY [Suspect]
     Indication: BIPOLAR DISORDER
     Dosage: 15 MG. (WAS 20 MG.) 1X DAILY
     Dates: start: 20080101

REACTIONS (8)
  - DEPRESSION [None]
  - DISTRACTIBILITY [None]
  - DYSKINESIA [None]
  - GAIT DISTURBANCE [None]
  - INSOMNIA [None]
  - PSYCHOMOTOR SKILLS IMPAIRED [None]
  - RESTLESSNESS [None]
  - TENSION [None]
